FAERS Safety Report 9688222 (Version 1)
Quarter: 2013Q4

REPORT INFORMATION
  Report Type: Spontaneous
  Country: US (occurrence: US)
  Receive Date: 20131114
  Receipt Date: 20131114
  Transmission Date: 20140711
  Serious: Yes (Death)
  Sender: FDA-Public Use
  Company Number: US-BAYER-2013-137027

PATIENT
  Age: 78 Year
  Sex: Male

DRUGS (1)
  1. ALKA-SELTZER ORIGINAL [Suspect]
     Dosage: UNK, QD

REACTIONS (4)
  - Lung neoplasm malignant [Fatal]
  - Incorrect drug administration duration [None]
  - Therapeutic response unexpected [None]
  - Malnutrition [None]
